FAERS Safety Report 11735623 (Version 1)
Quarter: 2015Q4

REPORT INFORMATION
  Report Type: Spontaneous
  Country: US (occurrence: US)
  Receive Date: 20151113
  Receipt Date: 20151113
  Transmission Date: 20160304
  Serious: No
  Sender: FDA-Public Use
  Company Number: US-JNJFOC-20151002314

PATIENT
  Sex: Male

DRUGS (1)
  1. RISPERDAL CONSTA [Suspect]
     Active Substance: RISPERIDONE
     Indication: SCHIZOPHRENIA
     Dosage: RECIEVING TREATMENT WITH RISPERIDONE CONSTA FROM ONE YEAR, LAST INJECTION RECIEVED ON 24-SEP-2015.
     Route: 065

REACTIONS (4)
  - Aggression [Unknown]
  - Screaming [Unknown]
  - Disturbance in social behaviour [Unknown]
  - Hallucinations, mixed [Unknown]
